FAERS Safety Report 7030015-9 (Version None)
Quarter: 2010Q4

REPORT INFORMATION
  Report Type: 
  Country: None (occurrence: None)
  Receive Date: 20101006
  Receipt Date: 20100922
  Transmission Date: 20110411
  Serious: Yes (Other)
  Sender: FDA-Public Use
  Company Number: PHHY2010JP63479

PATIENT
  Age: 30 Year
  Sex: Male

DRUGS (8)
  1. CYCLOSPORINE [Suspect]
     Indication: STEM CELL TRANSPLANT
  2. IRRADIATION [Suspect]
     Indication: STEM CELL TRANSPLANT
  3. CYCLOPHOSPHAMIDE [Concomitant]
     Indication: STEM CELL TRANSPLANT
  4. METHOTREXATE [Concomitant]
     Indication: STEM CELL TRANSPLANT
     Dosage: UNK
  5. METHOTREXATE [Concomitant]
     Indication: PROPHYLAXIS AGAINST GRAFT VERSUS HOST DISEASE
  6. MYCOPHENOLATE MOFETIL [Concomitant]
     Indication: STEM CELL TRANSPLANT
  7. FLUDARABINE PHOSPHATE [Concomitant]
     Indication: STEM CELL TRANSPLANT
  8. PREDNISOLONE [Concomitant]
     Indication: STEM CELL TRANSPLANT
     Dosage: 1 MG/KG, UNK

REACTIONS (11)
  - ACUTE GRAFT VERSUS HOST DISEASE [None]
  - ACUTE RESPIRATORY FAILURE [None]
  - CHRONIC GRAFT VERSUS HOST DISEASE [None]
  - DEEP VEIN THROMBOSIS [None]
  - NECK PAIN [None]
  - PERICARDITIS [None]
  - PLEURISY [None]
  - PNEUMATOSIS INTESTINALIS [None]
  - PNEUMOMEDIASTINUM [None]
  - RADIATION PNEUMONITIS [None]
  - THROMBOTIC MICROANGIOPATHY [None]
